FAERS Safety Report 10364971 (Version 1)
Quarter: 2014Q3

REPORT INFORMATION
  Report Type: Spontaneous
  Country: US (occurrence: None)
  Receive Date: 20140804
  Receipt Date: 20140804
  Transmission Date: 20150326
  Serious: Yes (Death, Hospitalization)
  Sender: FDA-Public Use
  Company Number: AMAG201400273

PATIENT
  Age: 76 Year
  Sex: Female

DRUGS (1)
  1. FERAHEME [Suspect]
     Active Substance: FERUMOXYTOL NON-STOICHIOMETRIC MAGNETITE
     Route: 042
     Dates: start: 20140501, end: 20140501

REACTIONS (5)
  - Cardiac failure congestive [None]
  - Extra dose administered [None]
  - Anaphylactic reaction [None]
  - Medication error [None]
  - Cardiac arrest [None]

NARRATIVE: CASE EVENT DATE: 20140501
